FAERS Safety Report 20450577 (Version 3)
Quarter: 2023Q1

REPORT INFORMATION
  Report Type: Report from Study
  Country: US (occurrence: US)
  Receive Date: 20220209
  Receipt Date: 20230126
  Transmission Date: 20230418
  Serious: No
  Sender: FDA-Public Use
  Company Number: US-KYOWAKIRIN-2022BKK001160

PATIENT

DRUGS (5)
  1. CRYSVITA [Suspect]
     Active Substance: BUROSUMAB-TWZA
     Indication: Hereditary hypophosphataemic rickets
     Dosage: EVERY 2 WEEKS
     Route: 058
  2. CRYSVITA [Suspect]
     Active Substance: BUROSUMAB-TWZA
     Dosage: 60 MG, EVERY 2 WEEKS
     Route: 058
     Dates: start: 20220113
  3. CRYSVITA [Suspect]
     Active Substance: BUROSUMAB-TWZA
     Dosage: UNK , 1X/4 WEEKS
     Route: 058
     Dates: start: 20220113
  4. CRYSVITA [Suspect]
     Active Substance: BUROSUMAB-TWZA
     Dosage: 80 MG, 1X/4 WEEKS(STRENGTH 20 AND 30 MG/ML COMBINED TO ACHIEVE DOSE OF 80 MG)
     Route: 058
     Dates: start: 20220113
  5. CRYSVITA [Suspect]
     Active Substance: BUROSUMAB-TWZA
     Indication: Hereditary hypophosphataemic rickets
     Dosage: 80 MG, 1X/4 WEEKS(STRENGTH 20 AND 30 MG/ML COMBINED TO ACHIEVE DOSE OF 80 MG)
     Route: 058
     Dates: start: 20220113

REACTIONS (7)
  - Asthenia [Unknown]
  - Arthralgia [Unknown]
  - Breast mass [Unknown]
  - Headache [Unknown]
  - Musculoskeletal discomfort [Unknown]
  - Product prescribing error [Unknown]
  - Therapeutic response shortened [Unknown]
